FAERS Safety Report 4583073-5 (Version None)
Quarter: 2005Q1

REPORT INFORMATION
  Report Type: 
  Country: None (occurrence: None)
  Receive Date: 20050125
  Receipt Date: 20041004
  Transmission Date: 20050727
  Serious: No
  Sender: FDA-Public Use
  Company Number: USA041079995

PATIENT
  Age: 84 Year
  Sex: Female
  Weight: 46 kg

DRUGS (3)
  1. FORTEO [Suspect]
     Indication: OSTEOPOROSIS
     Dates: start: 20040901
  2. PREMARIN [Concomitant]
  3. CALCIUM GLUCONATE [Concomitant]

REACTIONS (3)
  - FEELING ABNORMAL [None]
  - FREQUENT BOWEL MOVEMENTS [None]
  - NAUSEA [None]
